FAERS Safety Report 17748468 (Version 4)
Quarter: 2020Q3

REPORT INFORMATION
  Report Type: Report from Study
  Country: US (occurrence: US)
  Receive Date: 20200505
  Receipt Date: 20200819
  Transmission Date: 20201102
  Serious: Yes (Hospitalization)
  Sender: FDA-Public Use
  Company Number: US-ACTELION-A-NJ2019-195638

PATIENT
  Age: 61 Year
  Sex: Female

DRUGS (1)
  1. OPSUMIT [Suspect]
     Active Substance: MACITENTAN
     Indication: PULMONARY ARTERIAL HYPERTENSION
     Dosage: 10 MG, QD
     Route: 048
     Dates: start: 20181005

REACTIONS (7)
  - Cough [Unknown]
  - Oesophagogastroduodenoscopy [Unknown]
  - Herpes zoster [Not Recovered/Not Resolved]
  - Polypectomy [Unknown]
  - Colonoscopy [Unknown]
  - Hospitalisation [Unknown]
  - Anaemia [Unknown]

NARRATIVE: CASE EVENT DATE: 201908
